FAERS Safety Report 4499907-9 (Version None)
Quarter: 2004Q4

REPORT INFORMATION
  Report Type: 
  Country: None (occurrence: None)
  Receive Date: 20041108
  Receipt Date: 20041020
  Transmission Date: 20050328
  Serious: Yes (Hospitalization)
  Sender: FDA-Public Use
  Company Number: 9151

PATIENT
  Age: 31 Year
  Sex: Female

DRUGS (10)
  1. METHOTREXATE SODIUM [Suspect]
     Dosage: 8 MG/KG
     Dates: start: 19990101, end: 20040929
  2. METHOTREXATE SODIUM [Suspect]
     Dosage: 8 MG/KG
     Dates: start: 20040510
  3. METHOTREXATE SODIUM [Suspect]
     Dosage: 8 MG/KG
     Dates: start: 20040524
  4. INFLIXIMAB [Suspect]
     Indication: RHEUMATOID ARTHRITIS
     Dosage: 3 MG/KG
     Route: 042
     Dates: start: 20040621
  5. INFLIXIMAB [Suspect]
     Indication: RHEUMATOID ARTHRITIS
     Dosage: 3 MG/KG
     Route: 042
     Dates: start: 20040816
  6. ADRENOCORTICAL HORMONE [Concomitant]
  7. PREDNISOLONE [Concomitant]
  8. ETODOLAC [Concomitant]
  9. NEUTROPIN [Concomitant]
  10. LOXONIN [Concomitant]

REACTIONS (4)
  - ASTHENIA [None]
  - FATIGUE [None]
  - INTERSTITIAL LUNG DISEASE [None]
  - NAUSEA [None]
